FAERS Safety Report 23077295 (Version 4)
Quarter: 2024Q2

REPORT INFORMATION
  Report Type: Spontaneous
  Country: JP (occurrence: JP)
  Receive Date: 20231018
  Receipt Date: 20240628
  Transmission Date: 20240716
  Serious: Yes (Death, Hospitalization)
  Sender: FDA-Public Use
  Company Number: JP-MTPC-MTPC2023-0025178

PATIENT
  Age: 62 Year
  Sex: Male

DRUGS (10)
  1. REMICADE [Suspect]
     Active Substance: INFLIXIMAB
     Indication: Psoriasis
     Dosage: 300 MILLIGRAM, QD
     Route: 041
     Dates: start: 20100329
  2. REMICADE [Suspect]
     Active Substance: INFLIXIMAB
     Dosage: 300 MILLIGRAM, QD
     Route: 041
     Dates: start: 20100511, end: 20100511
  3. LOCOID [Concomitant]
     Active Substance: HYDROCORTISONE BUTYRATE
     Indication: Psoriasis
     Dosage: APPROPRIATE AMOUNT
     Dates: start: 20091117
  4. BETAMETHASONE DIPROPIONATE [Concomitant]
     Active Substance: BETAMETHASONE DIPROPIONATE
     Indication: Psoriasis
     Dosage: APPROPRIATE AMOUNT
     Dates: start: 20091117
  5. BETAMETHASONE DIPROPIONATE [Concomitant]
     Active Substance: BETAMETHASONE DIPROPIONATE
     Indication: Psoriasis
     Dosage: APPROPRIATE AMOUNT
     Dates: start: 20091117, end: 20091222
  6. ALLELOCK [Concomitant]
     Active Substance: OLOPATADINE HYDROCHLORIDE
     Indication: Psoriasis
     Dosage: 5 MILLIGRAM, BID
     Route: 048
     Dates: start: 20091117, end: 20100622
  7. MYSER [DIFLUPREDNATE] [Concomitant]
     Indication: Psoriasis
     Dosage: APPROPRIATE AMOUNT
     Dates: start: 20091222
  8. ETRETINATE [Concomitant]
     Active Substance: ETRETINATE
     Indication: Psoriasis
     Dosage: 10 MILLIGRAM, TID
     Route: 048
     Dates: start: 20091222, end: 20100622
  9. DIACORT [DIFLORASONE DIACETATE] [Concomitant]
     Indication: Psoriasis
     Dosage: APPROPRIATE AMOUNT
     Dates: start: 20100413
  10. LEVOFLOXACIN [Concomitant]
     Active Substance: LEVOFLOXACIN
     Dosage: UNK
     Route: 048

REACTIONS (1)
  - Rectosigmoid cancer [Fatal]

NARRATIVE: CASE EVENT DATE: 20100720
